FAERS Safety Report 6328010-8 (Version None)
Quarter: 2009Q3

REPORT INFORMATION
  Report Type: 
  Country: None (occurrence: None)
  Receive Date: 20090825
  Receipt Date: 20080903
  Transmission Date: 20100115
  Serious: No
  Sender: FDA-Public Use
  Company Number: US-ABBOTT-08P-163-0474098-00

PATIENT
  Sex: Female
  Weight: 58.112 kg

DRUGS (4)
  1. SYNTHROID [Suspect]
     Indication: THYROIDECTOMY
     Route: 048
     Dates: start: 20060101
  2. ENAPRILL [Concomitant]
     Indication: HYPERTENSION
     Route: 048
     Dates: start: 20030101
  3. BETOPTIC-F [Concomitant]
     Indication: GLAUCOMA
     Route: 047
     Dates: start: 20060101
  4. XALATHAN [Concomitant]
     Indication: GLAUCOMA
     Route: 047
     Dates: start: 19960101

REACTIONS (1)
  - DIARRHOEA [None]
